FAERS Safety Report 24304525 (Version 1)
Quarter: 2024Q3

REPORT INFORMATION
  Report Type: Other
  Country: US (occurrence: US)
  Receive Date: 20240910
  Receipt Date: 20240910
  Transmission Date: 20241017
  Serious: No
  Sender: SIGMA TAU
  Company Number: US-LEADIANT BIOSCIENCES, INC.-2023STPI000284

PATIENT
  Sex: Male

DRUGS (1)
  1. MATULANE [Suspect]
     Active Substance: PROCARBAZINE HYDROCHLORIDE
     Indication: Oligodendroglioma
     Dosage: 50 MILLIGRAMS, 3 CAPSULES [150MG TOTAL] ON ODD DAYS OF TREATMENT REGIMEN AND 2 CAPSULES [100MG TOTAL
     Route: 048
     Dates: start: 20230627

REACTIONS (3)
  - Thrombocytopenia [Unknown]
  - Neutropenia [Unknown]
  - Pruritus [Unknown]
